FAERS Safety Report 9476887 (Version 1)
Quarter: 2013Q3

REPORT INFORMATION
  Report Type: Spontaneous
  Country: US (occurrence: US)
  Receive Date: 20130826
  Receipt Date: 20130826
  Transmission Date: 20140515
  Serious: Yes (Hospitalization)
  Sender: FDA-Public Use
  Company Number: US-GLAXOSMITHKLINE-A1038585A

PATIENT
  Age: 57 Year
  Sex: Female

DRUGS (6)
  1. ADVAIR [Suspect]
     Indication: ASTHMA
     Dosage: 1PUFF TWICE PER DAY
     Route: 055
     Dates: start: 2005
  2. CANDESARTAN CILEXETIL + HYDROCHLOROTHIAZIDE [Suspect]
     Indication: BLOOD PRESSURE
  3. ALBUTEROL [Concomitant]
  4. MONTELUKAST [Concomitant]
  5. AMLODIPINE BESYLATE [Concomitant]
  6. PREDNISONE [Concomitant]

REACTIONS (8)
  - Respiratory tract infection [Not Recovered/Not Resolved]
  - Drug ineffective [Not Recovered/Not Resolved]
  - Asthma [Not Recovered/Not Resolved]
  - Blood pressure inadequately controlled [Not Recovered/Not Resolved]
  - Dyspnoea [Not Recovered/Not Resolved]
  - Tinnitus [Recovering/Resolving]
  - Headache [Recovering/Resolving]
  - Micturition frequency decreased [Not Recovered/Not Resolved]
